FAERS Safety Report 7419272-4 (Version None)
Quarter: 2011Q2

REPORT INFORMATION
  Report Type: 
  Country: None (occurrence: None)
  Receive Date: 20110415
  Receipt Date: 20110407
  Transmission Date: 20111010
  Serious: Yes (Hospitalization, Other)
  Sender: FDA-Public Use
  Company Number: US-ASTRAZENECA-2011SE08091

PATIENT
  Age: 75 Year
  Sex: Female

DRUGS (3)
  1. TOPROL-XL [Suspect]
     Route: 048
  2. NEXIUM [Suspect]
     Route: 048
  3. DEXILANT [Concomitant]

REACTIONS (7)
  - DRUG DOSE OMISSION [None]
  - CARDIOVASCULAR DISORDER [None]
  - VOMITING [None]
  - ACCIDENT [None]
  - MALAISE [None]
  - SPINAL FUSION SURGERY [None]
  - CERVICAL VERTEBRAL FRACTURE [None]
